FAERS Safety Report 15197868 (Version 1)
Quarter: 2018Q3

REPORT INFORMATION
  Report Type: Spontaneous
  Country: US (occurrence: US)
  Receive Date: 20180725
  Receipt Date: 20180725
  Transmission Date: 20181010
  Serious: No
  Sender: FDA-Public Use
  Company Number: US-ABBVIE-18P-163-2370831-00

PATIENT
  Age: 54 Year
  Sex: Female

DRUGS (2)
  1. SYNTHROID [Suspect]
     Active Substance: LEVOTHYROXINE SODIUM
     Indication: HYPOTHYROIDISM
     Dosage: 1 TABLET DAILY  4 DAYS A WEEK
     Route: 048
  2. SYNTHROID [Suspect]
     Active Substance: LEVOTHYROXINE SODIUM
     Dosage: 1 TABLET DAILY 3 DAYS A WEEK
     Route: 048

REACTIONS (3)
  - Erythema [Unknown]
  - Vision blurred [Recovered/Resolved]
  - Photosensitivity reaction [Recovered/Resolved]
